FAERS Safety Report 6505683-8 (Version None)
Quarter: 2009Q4

REPORT INFORMATION
  Report Type: 
  Country: None (occurrence: None)
  Receive Date: 20091218
  Receipt Date: 20091208
  Transmission Date: 20100525
  Serious: Yes (Hospitalization)
  Sender: FDA-Public Use
  Company Number: B0528875A

PATIENT
  Sex: Female
  Weight: 61 kg

DRUGS (1)
  1. LAPATINIB [Suspect]
     Indication: BREAST CANCER
     Dosage: 1500MG PER DAY
     Route: 048
     Dates: start: 20080626, end: 20080707

REACTIONS (3)
  - PRURITUS [None]
  - RASH [None]
  - RASH MACULO-PAPULAR [None]
